FAERS Safety Report 9922433 (Version 2)
Quarter: 2014Q1

REPORT INFORMATION
  Report Type: Spontaneous
  Country: US (occurrence: US)
  Receive Date: 20140225
  Receipt Date: 20140304
  Transmission Date: 20141002
  Serious: Yes (Other)
  Sender: FDA-Public Use
  Company Number: CHPA2014US002997

PATIENT
  Age: 67 Year
  Sex: Male

DRUGS (3)
  1. EXCEDRIN TENSION HEADACHE [Suspect]
     Indication: SINUS HEADACHE
     Dosage: UNK
     Route: 048
  2. EXCEDRIN TENSION HEADACHE [Suspect]
     Indication: OFF LABEL USE
  3. OMEPRAZOLE [Concomitant]
     Indication: GASTROOESOPHAGEAL REFLUX DISEASE
     Dosage: UNK

REACTIONS (3)
  - Sinusitis [Recovered/Resolved]
  - Headache [Recovered/Resolved]
  - Therapeutic response unexpected [Unknown]
